FAERS Safety Report 9419464 (Version 1)
Quarter: 2013Q3

REPORT INFORMATION
  Report Type: Spontaneous
  Country: IN (occurrence: IN)
  Receive Date: 20130723
  Receipt Date: 20130723
  Transmission Date: 20140515
  Serious: Yes (Other)
  Sender: FDA-Public Use
  Company Number: FK201302639

PATIENT
  Age: 14 Year
  Sex: Male
  Weight: 50 kg

DRUGS (2)
  1. ADENOSINE [Suspect]
     Indication: SUPRAVENTRICULAR TACHYCARDIA
     Route: 040
  2. NORMAL SALINE (SODIUM CHLORIDE) [Concomitant]

REACTIONS (6)
  - Incorrect route of drug administration [None]
  - Pain [None]
  - Flushing [None]
  - Hyperaemia [None]
  - Vision blurred [None]
  - Dizziness [None]
